FAERS Safety Report 8369076-3 (Version None)
Quarter: 2012Q2

REPORT INFORMATION
  Report Type: 
  Country: None (occurrence: None)
  Receive Date: 20120518
  Receipt Date: 20120509
  Transmission Date: 20120825
  Serious: Yes (Death, Other)
  Sender: FDA-Public Use
  Company Number: BR-SANOFI-AVENTIS-2012SA022171

PATIENT
  Age: 73 Year
  Sex: Male
  Weight: 87 kg

DRUGS (7)
  1. CARVEDILOL [Concomitant]
     Route: 048
     Dates: end: 20120307
  2. DIGOXIN [Concomitant]
     Route: 048
     Dates: end: 20120307
  3. WARFARIN SODIUM [Concomitant]
     Indication: ANTICOAGULANT THERAPY
     Route: 048
     Dates: end: 20120307
  4. LANTUS [Suspect]
     Dosage: FORM : VIALDOSE:17 UNTIL 22 UI DAILY,ACCORDING TO BLOOD GLUCOSE.
     Route: 058
     Dates: start: 20070101, end: 20120307
  5. ENALAPRIL MALEATE [Concomitant]
     Indication: BLOOD PRESSURE
     Route: 048
     Dates: end: 20120307
  6. SYNTHROID [Concomitant]
     Indication: THYROID DISORDER
     Dosage: STRENGTH: 100 MCG
     Route: 048
     Dates: end: 20120307
  7. GLUCOFORMIN [Concomitant]
     Dosage: STRENGTH: 500 MG
     Route: 048
     Dates: end: 20120307

REACTIONS (3)
  - CARDIAC FAILURE [None]
  - CARDIAC DISORDER [None]
  - FATIGUE [None]
